FAERS Safety Report 11803262 (Version 1)
Quarter: 2015Q4

REPORT INFORMATION
  Report Type: Spontaneous
  Country: HR (occurrence: HR)
  Receive Date: 20151204
  Receipt Date: 20151204
  Transmission Date: 20160305
  Serious: Yes (Death, Hospitalization)
  Sender: FDA-Public Use
  Company Number: HR-B.I. PHARMACEUTICALS,INC./RIDGEFIELD-2015-BI-67527HR

PATIENT
  Age: 85 Year
  Sex: Female

DRUGS (2)
  1. MARFARIN [Suspect]
     Active Substance: WARFARIN
     Indication: ATRIAL FIBRILLATION
     Route: 065
     Dates: end: 201506
  2. PRADAXA [Suspect]
     Active Substance: DABIGATRAN ETEXILATE MESYLATE
     Indication: ATRIAL FIBRILLATION
     Dosage: 220 MG
     Route: 065
     Dates: start: 201506

REACTIONS (7)
  - Shock [Unknown]
  - Medication error [Unknown]
  - Syncope [Unknown]
  - Drug interaction [Unknown]
  - Haematochezia [Fatal]
  - Haematoma [Unknown]
  - Melaena [Unknown]
